FAERS Safety Report 22198510 (Version 1)
Quarter: 2023Q2

REPORT INFORMATION
  Report Type: Spontaneous
  Country: ES (occurrence: ES)
  Receive Date: 20230411
  Receipt Date: 20230411
  Transmission Date: 20230722
  Serious: Yes (Life-Threatening, Hospitalization, Other)
  Sender: FDA-Public Use
  Company Number: None

PATIENT
  Age: 69 Year
  Sex: Female
  Weight: 80 kg

DRUGS (1)
  1. ENOXAPARIN SODIUM [Suspect]
     Active Substance: ENOXAPARIN SODIUM
     Indication: Thrombosis prophylaxis
     Dosage: 80 MG, Q12H
     Route: 058
     Dates: start: 20230321, end: 20230325

REACTIONS (2)
  - Haemoperitoneum [Unknown]
  - Splenic haematoma [Unknown]

NARRATIVE: CASE EVENT DATE: 20230325
